FAERS Safety Report 10251217 (Version 1)
Quarter: 2014Q2

REPORT INFORMATION
  Report Type: Spontaneous
  Country: PT (occurrence: PT)
  Receive Date: 20140620
  Receipt Date: 20140620
  Transmission Date: 20141212
  Serious: Yes (Life-Threatening, Hospitalization, Disabling, Other)
  Sender: FDA-Public Use
  Company Number: PT-ASTRAZENECA-2014SE45054

PATIENT
  Age: 22305 Day
  Sex: Male
  Weight: 80 kg

DRUGS (9)
  1. BRILIQUE [Suspect]
     Indication: ACUTE MYOCARDIAL INFARCTION
     Route: 048
     Dates: start: 20140502, end: 20140505
  2. ?CIDO ACETILSALIC?LICO [Interacting]
     Indication: ACUTE MYOCARDIAL INFARCTION
     Route: 048
     Dates: start: 20140502, end: 20140505
  3. REOPRO [Interacting]
     Indication: ARTERIAL CATHETERISATION
     Dosage: 20MG + 19.4MG, 32 /AS NECESSARY
     Route: 042
     Dates: start: 20140502, end: 20140503
  4. HEPARINA S?DICA [Interacting]
     Indication: ARTERIAL CATHETERISATION
     Route: 013
     Dates: start: 20140502, end: 20140502
  5. CLORETO DE S?DIO [Concomitant]
     Indication: PRODUCT USED FOR UNKNOWN INDICATION
     Route: 042
     Dates: start: 20140502, end: 20140504
  6. ESOMEPRAZOL [Concomitant]
     Indication: PROPHYLAXIS
     Route: 048
     Dates: start: 20140502, end: 20140519
  7. ATORVASTATINA [Concomitant]
     Indication: DYSLIPIDAEMIA
     Route: 048
     Dates: start: 20140502, end: 20140519
  8. CARVEDILOL [Concomitant]
     Indication: CORONARY ARTERY DISEASE
     Route: 048
     Dates: start: 20140504, end: 20140506
  9. CEFAZOLINA [Concomitant]
     Indication: URINARY TRACT INFECTION
     Route: 042
     Dates: start: 20140505, end: 20140507

REACTIONS (6)
  - Drug interaction [Unknown]
  - Brain herniation [Recovered/Resolved with Sequelae]
  - Fatigue [Recovered/Resolved]
  - Haemorrhage intracranial [Recovered/Resolved with Sequelae]
  - Headache [Recovered/Resolved]
  - Cerebral haematoma [Recovered/Resolved with Sequelae]
